FAERS Safety Report 4855482-8 (Version None)
Quarter: 2005Q4

REPORT INFORMATION
  Report Type: 
  Country: None (occurrence: None)
  Receive Date: 20051214
  Receipt Date: 20051130
  Transmission Date: 20060501
  Serious: Yes (Hospitalization)
  Sender: FDA-Public Use
  Company Number: 33000

PATIENT
  Age: 79 Year
  Sex: Male
  Weight: 74.8435 kg

DRUGS (1)
  1. VIGAMOX [Suspect]
     Indication: PROPHYLAXIS
     Dates: start: 20051102, end: 20051102

REACTIONS (2)
  - CONFUSIONAL STATE [None]
  - HALLUCINATION [None]
